FAERS Safety Report 10420368 (Version 1)
Quarter: 2014Q3

REPORT INFORMATION
  Report Type: Spontaneous
  Country: US (occurrence: None)
  Receive Date: 20140701
  Receipt Date: 20140701
  Transmission Date: 20150326
  Serious: No
  Sender: FDA-Public Use
  Company Number: 1000067003

PATIENT
  Age: 90 Year
  Sex: Male

DRUGS (4)
  1. LINZESS [Suspect]
     Active Substance: LINACLOTIDE
     Indication: CONSTIPATION
     Route: 048
     Dates: start: 20140422
  2. LASIX [Concomitant]
     Active Substance: FUROSEMIDE
  3. POTASSIUM (POTASSIUM) (POTASSIUM) [Concomitant]
  4. COUMADIN (WARFARIN) [Concomitant]

REACTIONS (1)
  - Drug ineffective [None]

NARRATIVE: CASE EVENT DATE: 20140501
